FAERS Safety Report 8440885-5 (Version None)
Quarter: 2012Q2

REPORT INFORMATION
  Report Type: 
  Country: None (occurrence: None)
  Receive Date: 20120615
  Receipt Date: 20110514
  Transmission Date: 20120825
  Serious: No
  Sender: FDA-Public Use
  Company Number: US-NOVEN-11US002454

PATIENT
  Sex: Male
  Weight: 40.816 kg

DRUGS (2)
  1. DAYTRANA [Suspect]
     Indication: ATTENTION DEFICIT/HYPERACTIVITY DISORDER
     Dosage: 15 MG, QD
     Route: 062
     Dates: start: 20110101
  2. CHILDRENS CHEWABLE VITAMINS [Concomitant]
     Indication: SUPPLEMENTATION THERAPY
     Dosage: 1 GUMMY QD
     Route: 048

REACTIONS (2)
  - APPLICATION SITE EROSION [None]
  - APPLICATION SITE IRRITATION [None]
